FAERS Safety Report 7701330-8 (Version None)
Quarter: 2011Q3

REPORT INFORMATION
  Report Type: 
  Country: None (occurrence: None)
  Receive Date: 20110822
  Receipt Date: 20110809
  Transmission Date: 20111222
  Serious: Yes (Other)
  Sender: FDA-Public Use
  Company Number: JP-ELI_LILLY_AND_COMPANY-JP201108003533

PATIENT
  Age: 40 Year

DRUGS (2)
  1. GEMZAR [Suspect]
     Indication: PANCREATIC CARCINOMA METASTATIC
     Dosage: 1000 MG/M2, OTHER
     Route: 042
  2. TS 1 [Concomitant]
     Indication: PANCREATIC CARCINOMA METASTATIC
     Dosage: 40 MG/M2, BID
     Route: 048

REACTIONS (1)
  - DECREASED APPETITE [None]
